FAERS Safety Report 7502394-7 (Version None)
Quarter: 2011Q2

REPORT INFORMATION
  Report Type: 
  Country: None (occurrence: None)
  Receive Date: 20110525
  Receipt Date: 20110512
  Transmission Date: 20111010
  Serious: Yes (Other)
  Sender: FDA-Public Use
  Company Number: GB-JNJFOC-20110506421

PATIENT
  Sex: Female

DRUGS (1)
  1. LISTERINE STAY WHITE [Suspect]
     Indication: PRODUCT USED FOR UNKNOWN INDICATION
     Dosage: USED IT ONCE
     Route: 048

REACTIONS (2)
  - THERMAL BURN [None]
  - TONGUE BLISTERING [None]
